FAERS Safety Report 6168596-X (Version None)
Quarter: 2009Q2

REPORT INFORMATION
  Report Type: 
  Country: None (occurrence: None)
  Receive Date: 20090423
  Receipt Date: 20090415
  Transmission Date: 20091009
  Serious: Yes (Other)
  Sender: FDA-Public Use
  Company Number: 246244

PATIENT
  Age: 74 Year
  Sex: Female

DRUGS (2)
  1. VANCOMYCIN HCL [Suspect]
     Indication: ANTIBIOTIC THERAPY
     Dosage: INTRAVENOUS
     Route: 042
     Dates: start: 20020101, end: 20020101
  2. PIPERACILLIN SODIUM AND TAZOBACTAM SODIUM [Suspect]
     Indication: ANTIBIOTIC THERAPY
     Dates: start: 20020101, end: 20020101

REACTIONS (5)
  - CULTURE STOOL POSITIVE [None]
  - DIARRHOEA [None]
  - FAECES DISCOLOURED [None]
  - STAPHYLOCOCCAL INFECTION [None]
  - WOUND INFECTION STAPHYLOCOCCAL [None]
